FAERS Safety Report 4414178-7 (Version None)
Quarter: 2004Q3

REPORT INFORMATION
  Report Type: 
  Country: None (occurrence: None)
  Receive Date: 20040728
  Receipt Date: 20040715
  Transmission Date: 20050211
  Serious: Yes (Life-Threatening)
  Sender: FDA-Public Use
  Company Number: HQWYE150015JUL04

PATIENT
  Age: 57 Year
  Sex: Male

DRUGS (7)
  1. AMIODARONE (AMIODARONE, TABLET) [Suspect]
     Indication: ATRIAL FIBRILLATION
     Dosage: 200 MG 3X PER 1 DAY ORAL
     Route: 048
  2. SERTRALINE HYDROCHLORIDE [Suspect]
  3. ASPIRIN [Concomitant]
  4. CLOPIDOGREL (CLOPIDOGREL) [Concomitant]
  5. SIMVASTATIN [Concomitant]
  6. PERINDOPRIL (PERINDOPRIL) [Concomitant]
  7. CARVEDILOL [Concomitant]

REACTIONS (4)
  - CARDIAC ARREST [None]
  - TORSADE DE POINTES [None]
  - VENTRICULAR FIBRILLATION [None]
  - VENTRICULAR TACHYCARDIA [None]
